FAERS Safety Report 6003568-7 (Version None)
Quarter: 2008Q4

REPORT INFORMATION
  Report Type: 
  Country: None (occurrence: None)
  Receive Date: 20081212
  Receipt Date: 20081127
  Transmission Date: 20090506
  Serious: Yes (Other)
  Sender: FDA-Public Use
  Company Number: JPI-P-005541

PATIENT
  Age: 76 Year
  Sex: Male

DRUGS (7)
  1. XYREM [Suspect]
     Indication: CATAPLEXY
     Dosage: 4.5 GM (2.25 GM, 2 IN 1 D), ORAL
     Route: 048
     Dates: start: 20081001, end: 20081001
  2. XYREM [Suspect]
     Indication: NARCOLEPSY
     Dosage: 4.5 GM (2.25 GM, 2 IN 1 D), ORAL
     Route: 048
     Dates: start: 20081001, end: 20081001
  3. ACETYLSALICYLATE LYSINE [Concomitant]
  4. TRIMETAZIDINE HYDROCHLORIDE [Concomitant]
  5. ATORVASTATIN CALCIUM [Concomitant]
  6. ALLOPURINOL [Concomitant]
  7. CLOPIDOGREL [Concomitant]

REACTIONS (1)
  - MYOCARDIAL INFARCTION [None]
